FAERS Safety Report 9172716 (Version 1)
Quarter: 2012Q4

REPORT INFORMATION
  Report Type: Report from Study
  Country: CA (occurrence: CA)
  Receive Date: 20120911
  Receipt Date: 20120911
  Transmission Date: 20130627
  Serious: Yes (Hospitalization)
  Sender: FDA-Public Use
  Company Number: CA-ROCHE-1117106

PATIENT
  Sex: Female
  Weight: 77.18 kg

DRUGS (2)
  1. MABTHERA [Suspect]
     Indication: IDIOPATHIC THROMBOCYTOPENIC PURPURA
     Route: 042
     Dates: start: 20120810, end: 20120831
  2. TETRACYCLINE [Concomitant]

REACTIONS (3)
  - Ligament disorder [Recovered/Resolved]
  - Platelet count decreased [Recovered/Resolved]
  - Hypersensitivity [Recovered/Resolved]
